FAERS Safety Report 21227922 (Version 1)
Quarter: 2022Q3

REPORT INFORMATION
  Report Type: Spontaneous
  Country: US (occurrence: US)
  Receive Date: 20220818
  Receipt Date: 20220818
  Transmission Date: 20221027
  Serious: No
  Sender: FDA-Public Use
  Company Number: US-009507513-2208USA001128

PATIENT
  Sex: Female

DRUGS (1)
  1. KEYTRUDA [Suspect]
     Active Substance: PEMBROLIZUMAB
     Indication: Cervix cancer metastatic
     Dosage: UNK
     Route: 042

REACTIONS (4)
  - Dysuria [Unknown]
  - Pollakiuria [Unknown]
  - Drug-device interaction [Unknown]
  - Stent placement [Unknown]

NARRATIVE: CASE EVENT DATE: 20220101
